FAERS Safety Report 9217499 (Version 1)
Quarter: 2013Q2

REPORT INFORMATION
  Report Type: Spontaneous
  Country: US (occurrence: US)
  Receive Date: 20130408
  Receipt Date: 20130408
  Transmission Date: 20140414
  Serious: Yes (Hospitalization)
  Sender: FDA-Public Use
  Company Number: US-PFIZER INC-2013109883

PATIENT
  Age: 65 Year
  Sex: Female
  Weight: 91 kg

DRUGS (4)
  1. NEURONTIN [Suspect]
     Indication: DIABETIC NEUROPATHY
     Dosage: 900 MG (THREE CAPSULES OF 300MG), 3X/DAY
     Route: 048
     Dates: start: 1988
  2. NEURONTIN [Suspect]
     Dosage: 400 MG, 3X/DAY
     Route: 048
     Dates: end: 201303
  3. NEURONTIN [Suspect]
     Indication: DIABETIC NEUROPATHY
     Dosage: 600 MG, UNK
     Route: 048
  4. LYRICA [Suspect]
     Indication: DIABETIC NEUROPATHY
     Dosage: 50 MG, 2X/DAY
     Route: 048
     Dates: start: 2010, end: 201303

REACTIONS (9)
  - Irritable bowel syndrome [Unknown]
  - Diarrhoea [Recovered/Resolved]
  - Gastric ulcer [Recovered/Resolved]
  - Large intestinal ulcer [Recovered/Resolved]
  - Cystitis [Recovered/Resolved]
  - Atrial fibrillation [Recovered/Resolved]
  - Pulmonary thrombosis [Unknown]
  - Drug ineffective [Unknown]
  - Malaise [Recovered/Resolved]
